FAERS Safety Report 12618165 (Version 1)
Quarter: 2016Q3

REPORT INFORMATION
  Report Type: Spontaneous
  Country: US (occurrence: None)
  Receive Date: 20160802
  Receipt Date: 20160802
  Transmission Date: 20161109
  Serious: Yes (Disabling, Other)
  Sender: FDA-Public Use
  Company Number: None

PATIENT
  Age: 36 Year
  Sex: Female
  Weight: 97.98 kg

DRUGS (14)
  1. SYNTHROID [Concomitant]
     Active Substance: LEVOTHYROXINE SODIUM
  2. CALCITRIOL. [Concomitant]
     Active Substance: CALCITRIOL
  3. TOPAMAX [Concomitant]
     Active Substance: TOPIRAMATE
  4. GADAVIST [Suspect]
     Active Substance: GADOBUTROL
  5. DULERA [Concomitant]
     Active Substance: FORMOTEROL FUMARATE DIHYDRATE\MOMETASONE FUROATE
  6. TYLENOL [Concomitant]
     Active Substance: ACETAMINOPHEN
  7. IRON [Concomitant]
     Active Substance: IRON
  8. DICLOFLENAC [Concomitant]
  9. ZYRTEC [Concomitant]
     Active Substance: CETIRIZINE HYDROCHLORIDE
  10. NORCO [Concomitant]
     Active Substance: ACETAMINOPHEN\HYDROCODONE BITARTRATE
  11. VITAMIN D [Concomitant]
     Active Substance: CHOLECALCIFEROL
  12. HYDROXYCOBALAMIN [Concomitant]
  13. TUMS [Concomitant]
     Active Substance: CALCIUM CARBONATE
  14. VENTOLIN [Concomitant]
     Active Substance: ALBUTEROL SULFATE

REACTIONS (6)
  - Muscle tightness [None]
  - Vein rupture [None]
  - Malaise [None]
  - Cough [None]
  - Pain [None]
  - Device use error [None]

NARRATIVE: CASE EVENT DATE: 20160608
